FAERS Safety Report 21403865 (Version 1)
Quarter: 2022Q4

REPORT INFORMATION
  Report Type: Spontaneous
  Country: GB (occurrence: None)
  Receive Date: 20221003
  Receipt Date: 20221003
  Transmission Date: 20230113
  Serious: Yes (Other)
  Sender: FDA-Public Use
  Company Number: 2022A332814

PATIENT
  Sex: Male

DRUGS (1)
  1. QUETIAPINE [Suspect]
     Active Substance: QUETIAPINE
     Indication: Product used for unknown indication
     Dosage: 300 MG
     Route: 065

REACTIONS (5)
  - Migraine [Recovered/Resolved]
  - Hyperglycaemia [Recovered/Resolved]
  - Dry mouth [Recovered/Resolved]
  - Product dispensing error [Unknown]
  - Wrong product administered [Unknown]
